FAERS Safety Report 13920484 (Version 3)
Quarter: 2017Q3

REPORT INFORMATION
  Report Type: Spontaneous
  Country: AR (occurrence: AR)
  Receive Date: 20170830
  Receipt Date: 20170914
  Transmission Date: 20171127
  Serious: Yes (Other)
  Sender: FDA-Public Use
  Company Number: PHHY2017AR125954

PATIENT
  Sex: Female

DRUGS (1)
  1. BETAXOLOL HCL [Suspect]
     Active Substance: BETAXOLOL HYDROCHLORIDE
     Indication: INTRAOCULAR PRESSURE INCREASED
     Dosage: 1 GTT, BID
     Route: 047

REACTIONS (4)
  - Drug hypersensitivity [Unknown]
  - Glaucoma [Unknown]
  - Abdominal discomfort [Unknown]
  - Eye inflammation [Unknown]
